FAERS Safety Report 5527971-4 (Version None)
Quarter: 2007Q4

REPORT INFORMATION
  Report Type: 
  Country: None (occurrence: None)
  Receive Date: 20071123
  Receipt Date: 20071116
  Transmission Date: 20080405
  Serious: Yes (Death)
  Sender: FDA-Public Use
  Company Number: 20074252

PATIENT
  Age: 50 Year
  Sex: Female

DRUGS (1)
  1. LIORESAL [Suspect]
     Indication: MUSCLE SPASTICITY
     Dosage: 341 MCG, DAILY, INTRATHECAL
     Route: 037

REACTIONS (1)
  - CARDIO-RESPIRATORY ARREST [None]
